FAERS Safety Report 22946760 (Version 2)
Quarter: 2023Q4

REPORT INFORMATION
  Report Type: Report from Study
  Country: US (occurrence: US)
  Receive Date: 20230915
  Receipt Date: 20231031
  Transmission Date: 20240110
  Serious: Yes (Other)
  Sender: FDA-Public Use
  Company Number: US-ABBVIE-5364764

PATIENT
  Sex: Female

DRUGS (2)
  1. HUMIRA [Suspect]
     Active Substance: ADALIMUMAB
     Indication: Hidradenitis
     Dosage: CITRATE FREE?FORM STRENGTH: 40 MILLIGRAM
     Route: 058
     Dates: start: 20221212
  2. HUMIRA [Suspect]
     Active Substance: ADALIMUMAB
     Dosage: CITRATE FREE?FORM STRENGTH: 40 MILLIGRAM
     Route: 058

REACTIONS (17)
  - Axillary mass [Recovering/Resolving]
  - Hidradenitis [Not Recovered/Not Resolved]
  - Incision site haemorrhage [Not Recovered/Not Resolved]
  - Papule [Recovered/Resolved]
  - Skin exfoliation [Unknown]
  - Axillary pain [Recovered/Resolved]
  - Gait inability [Unknown]
  - Pain in extremity [Recovered/Resolved]
  - Nodule [Not Recovered/Not Resolved]
  - Vulvitis [Unknown]
  - Postoperative wound infection [Not Recovered/Not Resolved]
  - Furuncle [Recovered/Resolved]
  - Incision site haemorrhage [Recovered/Resolved]
  - Pain [Recovered/Resolved]
  - Skin discomfort [Recovered/Resolved]
  - Skin discomfort [Recovered/Resolved]
  - Pain [Recovering/Resolving]

NARRATIVE: CASE EVENT DATE: 20230101
